FAERS Safety Report 25263576 (Version 1)
Quarter: 2025Q2

REPORT INFORMATION
  Report Type: Spontaneous
  Country: US (occurrence: US)
  Receive Date: 20250502
  Receipt Date: 20250502
  Transmission Date: 20250717
  Serious: No
  Sender: AMGEN
  Company Number: US-AMGEN-USASP2025084574

PATIENT
  Age: 6 Year
  Sex: Male

DRUGS (1)
  1. PROCYSBI [Suspect]
     Active Substance: CYSTEAMINE BITARTRATE
     Indication: Cystinosis
     Route: 065
     Dates: end: 20250421

REACTIONS (4)
  - Nausea [Unknown]
  - Vomiting [Unknown]
  - Infection [Unknown]
  - Intentional product misuse [Unknown]
